FAERS Safety Report 12429289 (Version 3)
Quarter: 2018Q4

REPORT INFORMATION
  Report Type: Spontaneous
  Country: US (occurrence: US)
  Receive Date: 20160602
  Receipt Date: 20181220
  Transmission Date: 20190204
  Serious: Yes (Other)
  Sender: FDA-Public Use
  Company Number: US-ASTRAZENECA-2013SE42030

PATIENT
  Age: 55 Year
  Sex: Female
  Weight: 76.2 kg

DRUGS (8)
  1. METFORMIN HYDROCHLORIDE. [Suspect]
     Active Substance: METFORMIN HYDROCHLORIDE
     Dosage: 1000 MG, BID, (NON AZ PRODUCT)
     Route: 065
  2. LIPITOR [Concomitant]
     Active Substance: ATORVASTATIN CALCIUM
     Dosage: 20 MG, QD
  3. BYETTA [Suspect]
     Active Substance: EXENATIDE
     Indication: TYPE 2 DIABETES MELLITUS
     Route: 058
     Dates: start: 201306
  4. LISINOPRIL+ HCTZ [Concomitant]
  5. BYETTA [Suspect]
     Active Substance: EXENATIDE
     Indication: TYPE 2 DIABETES MELLITUS
     Route: 058
     Dates: start: 2009, end: 2013
  6. ALBUTEROL. [Concomitant]
     Active Substance: ALBUTEROL
     Indication: CHRONIC OBSTRUCTIVE PULMONARY DISEASE
     Dosage: NEBULIZER
  7. BYDUREON [Suspect]
     Active Substance: EXENATIDE
     Indication: TYPE 2 DIABETES MELLITUS
     Route: 058
     Dates: start: 2015
  8. ASPIRIN. [Concomitant]
     Active Substance: ASPIRIN

REACTIONS (32)
  - Hypoaesthesia [Unknown]
  - Weight increased [Unknown]
  - Vision blurred [Unknown]
  - Balance disorder [Unknown]
  - Nausea [Not Recovered/Not Resolved]
  - Gastrooesophageal reflux disease [Unknown]
  - Dizziness [Unknown]
  - Mood swings [Unknown]
  - Lung neoplasm malignant [Recovered/Resolved]
  - Anxiety [Unknown]
  - Injection site pain [Unknown]
  - Injection site haemorrhage [Unknown]
  - Asthenia [Unknown]
  - Incorrect dose administered [Unknown]
  - Blood glucose increased [Unknown]
  - Increased appetite [Unknown]
  - Diarrhoea [Unknown]
  - Hyperhidrosis [Unknown]
  - Skin striae [Unknown]
  - Dysarthria [Unknown]
  - Colon cancer [Recovered/Resolved]
  - Benign neoplasm [Recovering/Resolving]
  - Cyst [Unknown]
  - Confusional state [Unknown]
  - Liver disorder [Unknown]
  - Injection site nodule [Unknown]
  - Injection site mass [Unknown]
  - Product administration error [Unknown]
  - Intentional device misuse [Unknown]
  - Hepatic cirrhosis [Unknown]
  - Hypersomnia [Unknown]
  - Weight decreased [Unknown]

NARRATIVE: CASE EVENT DATE: 2009
